FAERS Safety Report 23922174 (Version 2)
Quarter: 2024Q3

REPORT INFORMATION
  Report Type: Report from Study
  Country: PE (occurrence: PE)
  Receive Date: 20240531
  Receipt Date: 20240703
  Transmission Date: 20241017
  Serious: Yes (Hospitalization)
  Sender: JOHNSON AND JOHNSON
  Company Number: PE-JNJFOC-20240568901

PATIENT
  Age: 66 Year
  Sex: Female

DRUGS (1)
  1. SIMPONI [Suspect]
     Active Substance: GOLIMUMAB
     Indication: Rheumatoid arthritis
     Dosage: LAST DRUG APPLICATION: 03-MAY-2024,LAST APPLICATION ON 02-JUN-2024
     Route: 058
     Dates: start: 20231004

REACTIONS (8)
  - Bacterial infection [Recovered/Resolved]
  - Surgery [Unknown]
  - Decreased immune responsiveness [Unknown]
  - Influenza [Unknown]
  - Device related infection [Unknown]
  - Genital disorder [Unknown]
  - Haemoglobin decreased [Unknown]
  - White blood cell count decreased [Unknown]

NARRATIVE: CASE EVENT DATE: 20240103
